FAERS Safety Report 22617081 (Version 4)
Quarter: 2024Q3

REPORT INFORMATION
  Report Type: Report from Study
  Country: CO (occurrence: CO)
  Receive Date: 20230620
  Receipt Date: 20240720
  Transmission Date: 20241017
  Serious: Yes (Hospitalization, Other)
  Sender: ABBVIE
  Company Number: CO-ABBVIE-5294644

PATIENT
  Sex: Male
  Weight: 60 kg

DRUGS (10)
  1. SKYRIZI [Suspect]
     Active Substance: RISANKIZUMAB-RZAA
     Indication: Psoriasis
     Dosage: FORM STRENGTH: 75 MILLIGRAM
     Route: 058
     Dates: start: 20211201, end: 20230414
  2. SKYRIZI [Suspect]
     Active Substance: RISANKIZUMAB-RZAA
     Dosage: FORM STRENGTH: 150 MILLIGRAM
     Route: 058
     Dates: start: 20240405, end: 20240405
  3. SKYRIZI [Suspect]
     Active Substance: RISANKIZUMAB-RZAA
     Dosage: FORM STRENGTH: 75 MILLIGRAM
     Route: 058
     Dates: start: 20230830, end: 20240405
  4. ESOMEPRAZOLE [Concomitant]
     Active Substance: ESOMEPRAZOLE
     Indication: Gastritis
     Dosage: 1 TABLET
     Route: 048
     Dates: start: 20230603
  5. CLOPIDOGREL [Concomitant]
     Active Substance: CLOPIDOGREL BISULFATE
     Indication: Arterial occlusive disease
     Dosage: 1 TABLET, FORM STRENGTH: 75MILLIGRAM
     Route: 048
     Dates: start: 20230603
  6. ASPIRIN [Concomitant]
     Active Substance: ASPIRIN
     Indication: Arterial occlusive disease
     Dosage: 1 TABLET,FORM STRENGTH: 100 MILLIGRAM, ONGOING
     Route: 048
     Dates: start: 20230603
  7. METHOTREXATE [Concomitant]
     Active Substance: METHOTREXATE
     Indication: Product used for unknown indication
     Route: 065
  8. OMEPRAZOLE [Concomitant]
     Active Substance: OMEPRAZOLE
     Indication: Gastritis prophylaxis
     Dosage: 40 MILLIGRAM
     Route: 048
     Dates: start: 202306
  9. CARVEDILOL [Concomitant]
     Active Substance: CARVEDILOL
     Indication: Arterial occlusive disease
     Dosage: 75 MILLIGRAM
     Route: 048
     Dates: start: 202306
  10. ATORVASTATIN [Concomitant]
     Active Substance: ATORVASTATIN
     Indication: Blood cholesterol
     Dosage: FORM STRENGTH: 40MILLIGRAM,
     Route: 048
     Dates: start: 202306

REACTIONS (13)
  - Chest pain [Recovered/Resolved with Sequelae]
  - Catheter placement [Recovered/Resolved]
  - Tachycardia [Recovered/Resolved]
  - Coagulopathy [Recovered/Resolved]
  - Gastritis [Recovering/Resolving]
  - Abdominal pain upper [Recovering/Resolving]
  - Choking sensation [Unknown]
  - Bone disorder [Not Recovered/Not Resolved]
  - Tachycardia [Not Recovered/Not Resolved]
  - Therapeutic product effect incomplete [Unknown]
  - Arterial occlusive disease [Recovered/Resolved]
  - Blood cholesterol increased [Recovering/Resolving]
  - Weight decreased [Not Recovered/Not Resolved]

NARRATIVE: CASE EVENT DATE: 20230101
